FAERS Safety Report 14163011 (Version 1)
Quarter: 2017Q4

REPORT INFORMATION
  Report Type: Spontaneous
  Country: TR (occurrence: TR)
  Receive Date: 20171106
  Receipt Date: 20171106
  Transmission Date: 20180321
  Serious: Yes (Death, Hospitalization, Other)
  Sender: FDA-Public Use
  Company Number: TR-ASTELLAS-2017US045072

PATIENT
  Age: 34 Year
  Sex: Male

DRUGS (3)
  1. PREDNISOLONE. [Suspect]
     Active Substance: PREDNISOLONE
     Indication: RENAL TRANSPLANT
     Dosage: UNK, UNKNOWN FREQ.
     Route: 065
  2. TACROLIMUS. [Suspect]
     Active Substance: TACROLIMUS
     Indication: RENAL TRANSPLANT
     Dosage: UNK UNK, UNKNOWN FREQ.
     Route: 065
  3. MYCOPHENOLATE MOFETIL. [Suspect]
     Active Substance: MYCOPHENOLATE MOFETIL
     Indication: RENAL TRANSPLANT
     Dosage: UNK UNK, UNKNOWN FREQ.
     Route: 065

REACTIONS (11)
  - Cytomegalovirus infection [Recovering/Resolving]
  - Aortic aneurysm [Unknown]
  - Sepsis [Unknown]
  - Nosocomial infection [Unknown]
  - Multiple organ dysfunction syndrome [Unknown]
  - Aortic dissection [Unknown]
  - Disseminated intravascular coagulation [Unknown]
  - Pleural effusion [Not Recovered/Not Resolved]
  - Pneumonia [Unknown]
  - Death [Fatal]
  - Acute kidney injury [Unknown]
